FAERS Safety Report 18490967 (Version 1)
Quarter: 2020Q4

REPORT INFORMATION
  Report Type: Spontaneous
  Country: US (occurrence: US)
  Receive Date: 20201111
  Receipt Date: 20201111
  Transmission Date: 20210114
  Serious: Yes (Other)
  Sender: FDA-Public Use
  Company Number: US-MYLANLABS-2020M1094069

PATIENT
  Age: 2 Month
  Sex: Female
  Weight: 2.8 kg

DRUGS (2)
  1. BUPIVACAINE. [Suspect]
     Active Substance: BUPIVACAINE
     Indication: SPINAL ANAESTHESIA
     Dosage: 3 MILLIGRAM
  2. EPINEPHRINE. [Suspect]
     Active Substance: EPINEPHRINE
     Indication: SPINAL ANAESTHESIA
     Dosage: 1:200000

REACTIONS (4)
  - Off label use [Unknown]
  - Corneal reflex decreased [Recovered/Resolved]
  - Areflexia [Recovered/Resolved]
  - Loss of consciousness [Recovered/Resolved]
